FAERS Safety Report 9052935 (Version 2)
Quarter: 2013Q1

REPORT INFORMATION
  Report Type: Spontaneous
  Country: CO (occurrence: CO)
  Receive Date: 20130208
  Receipt Date: 20130319
  Transmission Date: 20140127
  Serious: Yes (Death, Hospitalization, Other)
  Sender: FDA-Public Use
  Company Number: CO-AMGEN-COLSP2013005514

PATIENT
  Age: 23 Year
  Sex: Female

DRUGS (3)
  1. ENBREL [Suspect]
     Indication: PSORIASIS
     Dosage: 50 MG, 2X/WEEK
     Route: 058
     Dates: start: 2009
  2. CYCLOSPORINE [Concomitant]
     Indication: PSORIASIS
     Dosage: 100 MG, 2X/DAY
     Route: 048
     Dates: start: 2009
  3. ACETAMINOPHEN [Concomitant]
     Indication: PAIN
     Dosage: 2 DF, AS NECESSARY
     Route: 048
     Dates: start: 2009

REACTIONS (5)
  - Psoriasis [Fatal]
  - Rash generalised [Recovering/Resolving]
  - Pruritus [Recovering/Resolving]
  - Drug intolerance [Recovering/Resolving]
  - Cellulitis [Recovering/Resolving]
